FAERS Safety Report 12809854 (Version 1)
Quarter: 2016Q4

REPORT INFORMATION
  Report Type: Spontaneous
  Country: US (occurrence: US)
  Receive Date: 20161004
  Receipt Date: 20161004
  Transmission Date: 20170207
  Serious: Yes (Disabling, Other)
  Sender: FDA-Public Use
  Company Number: None

PATIENT
  Age: 46 Year
  Sex: Male
  Weight: 69.75 kg

DRUGS (19)
  1. MILK THISTLE [Concomitant]
     Active Substance: MILK THISTLE
  2. ALPHA LIPOIC ACID [Concomitant]
     Active Substance: .ALPHA.-LIPOIC ACID
  3. VITAMIN B12 [Concomitant]
     Active Substance: CYANOCOBALAMIN
  4. CIPRO [Suspect]
     Active Substance: CIPROFLOXACIN HYDROCHLORIDE
     Indication: DIARRHOEA INFECTIOUS
     Dosage: OTHER EVERY 12 HOURS ORAL?
     Route: 048
     Dates: start: 20160627, end: 20160630
  5. N ACETLY L CYSTEINE [Concomitant]
  6. MAGNESIUM/POTASSIUM/ELECTROLYTE [Concomitant]
  7. TURMERIC [Concomitant]
     Active Substance: TURMERIC
  8. B6 [Concomitant]
     Active Substance: PYRIDOXINE HYDROCHLORIDE
  9. MAGNESIUM [Concomitant]
     Active Substance: MAGNESIUM
  10. VITAMIN D [Concomitant]
     Active Substance: CHOLECALCIFEROL
  11. ACETYL L CARNITINE [Concomitant]
  12. VITAMIN C [Concomitant]
     Active Substance: ASCORBIC ACID
  13. MULTIVITAMIN [Concomitant]
     Active Substance: VITAMINS
  14. VITAMIN E [Concomitant]
     Active Substance: .ALPHA.-TOCOPHEROL
  15. PROBIOTICS [Concomitant]
     Active Substance: PROBIOTICS NOS
  16. PQQ [Concomitant]
  17. FISH OIL [Concomitant]
     Active Substance: FISH OIL
  18. UBIQUINOL [Concomitant]
     Active Substance: UBIQUINOL
  19. GLUTATHIONE [Concomitant]
     Active Substance: GLUTATHIONE

REACTIONS (5)
  - Muscle contractions involuntary [None]
  - Tendonitis [None]
  - Muscle spasms [None]
  - Neuropathy peripheral [None]
  - Myopathy [None]

NARRATIVE: CASE EVENT DATE: 20160630
